FAERS Safety Report 6955239-8 (Version None)
Quarter: 2010Q3

REPORT INFORMATION
  Report Type: 
  Country: None (occurrence: None)
  Receive Date: 20100830
  Receipt Date: 20100817
  Transmission Date: 20110219
  Serious: No
  Sender: FDA-Public Use
  Company Number: JP-ELI_LILLY_AND_COMPANY-JP201008005254

PATIENT
  Age: 65 Year
  Sex: Female

DRUGS (2)
  1. ZYPREXA [Suspect]
     Indication: SCHIZOPHRENIA
     Route: 048
  2. ARIPIPRAZOLE [Concomitant]
     Route: 048

REACTIONS (1)
  - PLATELET COUNT DECREASED [None]
